FAERS Safety Report 7980311-3 (Version None)
Quarter: 2011Q4

REPORT INFORMATION
  Report Type: 
  Country: None (occurrence: None)
  Receive Date: 20111214
  Receipt Date: 20111207
  Transmission Date: 20120403
  Serious: Yes (Other)
  Sender: FDA-Public Use
  Company Number: PHHY2011US106918

PATIENT
  Age: 43 Year
  Sex: Male

DRUGS (9)
  1. ALPRAZOLAM [Concomitant]
     Indication: ANXIETY DISORDER
     Dosage: 0.5 MG, BID
  2. LINEZOLID [Concomitant]
     Indication: BODY TEMPERATURE INCREASED
  3. AZTREONAM [Concomitant]
     Indication: BODY TEMPERATURE INCREASED
  4. ARSENIC TRIOXIDE [Concomitant]
     Dosage: 0.15 ML/KG, OVER 2 HOUR
     Dates: start: 20060929
  5. FLUCONAZOLE [Suspect]
     Indication: BODY TEMPERATURE INCREASED
  6. ACYCLOVIR [Concomitant]
     Indication: BODY TEMPERATURE INCREASED
  7. VANCOMYCIN [Concomitant]
     Indication: BODY TEMPERATURE INCREASED
  8. LORAZEPAM [Concomitant]
     Indication: ANXIETY DISORDER
  9. FLUVOXAMINE MALEATE [Suspect]
     Dosage: 100 MG, UNK

REACTIONS (5)
  - ANXIETY [None]
  - ELECTROCARDIOGRAM QT PROLONGED [None]
  - SEROTONIN SYNDROME [None]
  - DEPRESSION [None]
  - OBSESSIVE-COMPULSIVE DISORDER [None]
